FAERS Safety Report 24693643 (Version 1)
Quarter: 2024Q4

REPORT INFORMATION
  Report Type: Spontaneous
  Country: PL (occurrence: PL)
  Receive Date: 20241204
  Receipt Date: 20241204
  Transmission Date: 20250115
  Serious: Yes (Hospitalization)
  Sender: NOVO NORDISK
  Company Number: PL-NOVOPROD-1325406

PATIENT
  Age: 56 Year
  Sex: Female
  Weight: 100 kg

DRUGS (3)
  1. SAXENDA [Suspect]
     Active Substance: LIRAGLUTIDE
     Indication: Hypertension
     Dosage: UNK (DOSE REDUCED)
     Route: 058
     Dates: start: 202408
  2. SAXENDA [Suspect]
     Active Substance: LIRAGLUTIDE
     Indication: Body mass index increased
     Dosage: 1.8 MG, QD
     Route: 058
  3. SAXENDA [Suspect]
     Active Substance: LIRAGLUTIDE
     Indication: Dyslipidaemia
     Dosage: UNK
     Route: 058
     Dates: start: 202401

REACTIONS (3)
  - Helicobacter gastritis [Recovered/Resolved]
  - Subileus [Recovered/Resolved]
  - Dysgeusia [Unknown]

NARRATIVE: CASE EVENT DATE: 20240801
